FAERS Safety Report 8380470-7 (Version None)
Quarter: 2012Q2

REPORT INFORMATION
  Report Type: 
  Country: None (occurrence: None)
  Receive Date: 20120523
  Receipt Date: 20110916
  Transmission Date: 20120825
  Serious: Yes (Other)
  Sender: FDA-Public Use
  Company Number: JP-GLAXOSMITHKLINE-B0749063A

PATIENT
  Age: 33 Year

DRUGS (9)
  1. TRACLEER [Concomitant]
     Route: 048
  2. PROGRAF [Concomitant]
     Route: 065
  3. FUROSEMIDE [Concomitant]
     Route: 048
  4. ALDACTONE [Concomitant]
     Route: 048
  5. DIART [Concomitant]
     Route: 048
  6. NEORAL [Concomitant]
     Route: 048
  7. FLOLAN [Suspect]
     Indication: PULMONARY ARTERIAL HYPERTENSION
     Route: 042
     Dates: start: 20110808
  8. ADCIRCA [Concomitant]
     Route: 048
  9. LEVOFLOXACIN [Concomitant]
     Route: 065

REACTIONS (2)
  - MATERNAL EXPOSURE DURING PREGNANCY [None]
  - THROMBOCYTOPENIA [None]
